FAERS Safety Report 6092967-3 (Version None)
Quarter: 2009Q1

REPORT INFORMATION
  Report Type: 
  Country: None (occurrence: None)
  Receive Date: 20090224
  Receipt Date: 20081113
  Transmission Date: 20090719
  Serious: Yes (Death)
  Sender: FDA-Public Use
  Company Number: 2008-0010

PATIENT
  Age: 22 Year
  Sex: Male

DRUGS (4)
  1. METHADONE HCL [Suspect]
  2. FLUOXETINE [Suspect]
  3. MARIJUNA [Concomitant]
  4. AMPHETAMINES [Concomitant]

REACTIONS (1)
  - OVERDOSE [None]
